FAERS Safety Report 6357740-7 (Version None)
Quarter: 2009Q3

REPORT INFORMATION
  Report Type: 
  Country: None (occurrence: None)
  Receive Date: 20090911
  Receipt Date: 20090827
  Transmission Date: 20100115
  Serious: Yes (Death)
  Sender: FDA-Public Use
  Company Number: 8051552

PATIENT

DRUGS (1)
  1. KEPPRA [Suspect]

REACTIONS (1)
  - OVERDOSE [None]
